FAERS Safety Report 19577440 (Version 1)
Quarter: 2021Q3

REPORT INFORMATION
  Report Type: Spontaneous
  Country: US (occurrence: US)
  Receive Date: 20210719
  Receipt Date: 20210719
  Transmission Date: 20211014
  Serious: No
  Sender: FDA-Public Use
  Company Number: US-CHIASMA-2021CHI00119

PATIENT
  Sex: Male

DRUGS (20)
  1. HEPARIN [Concomitant]
     Active Substance: HEPARIN SODIUM
  2. IRON [Concomitant]
     Active Substance: IRON
  3. ZANAFLEX [Concomitant]
     Active Substance: TIZANIDINE HYDROCHLORIDE
  4. DURAGESIC [Concomitant]
     Active Substance: FENTANYL
  5. LIDOCAINE. [Concomitant]
     Active Substance: LIDOCAINE
  6. ZOFRAN [Concomitant]
     Active Substance: ONDANSETRON HYDROCHLORIDE
  7. PROTONIX [Concomitant]
     Active Substance: PANTOPRAZOLE SODIUM
  8. LOMOTIL [Concomitant]
     Active Substance: ATROPINE SULFATE\DIPHENOXYLATE HYDROCHLORIDE
  9. MYCAPSSA [Suspect]
     Active Substance: OCTREOTIDE
     Indication: PRODUCT USED FOR UNKNOWN INDICATION
     Dosage: UNK
  10. ELIQUIS [Concomitant]
     Active Substance: APIXABAN
  11. DIPHENHYDRAMINE. [Concomitant]
     Active Substance: DIPHENHYDRAMINE
  12. FERROUS SULFATE. [Concomitant]
     Active Substance: FERROUS SULFATE
  13. DESYREL [Concomitant]
     Active Substance: TRAZODONE HYDROCHLORIDE
  14. COMPAZINE [Concomitant]
     Active Substance: PROCHLORPERAZINE MALEATE
  15. CABOMETYX [Suspect]
     Active Substance: CABOZANTINIB S-MALATE
     Indication: RENAL CANCER
     Dosage: 60 MG, 1X/DAY
     Route: 048
     Dates: start: 20201224
  16. LOVENOX [Concomitant]
     Active Substance: ENOXAPARIN SODIUM
  17. PERCOCET [Concomitant]
     Active Substance: ACETAMINOPHEN\OXYCODONE HYDROCHLORIDE
  18. REMERON [Concomitant]
     Active Substance: MIRTAZAPINE
  19. FLOMAX [Concomitant]
     Active Substance: TAMSULOSIN HYDROCHLORIDE
  20. ADVIL [Concomitant]
     Active Substance: IBUPROFEN

REACTIONS (1)
  - Diarrhoea [Unknown]
